FAERS Safety Report 23585603 (Version 1)
Quarter: 2024Q1

REPORT INFORMATION
  Report Type: Spontaneous
  Country: GB (occurrence: GB)
  Receive Date: 20240301
  Receipt Date: 20240301
  Transmission Date: 20240409
  Serious: Yes (Other)
  Sender: FDA-Public Use
  Company Number: GB-SUN PHARMACEUTICAL INDUSTRIES LTD-2024RR-433251

PATIENT
  Age: 57 Year
  Sex: Male

DRUGS (1)
  1. CIPROFLOXACIN [Suspect]
     Active Substance: CIPROFLOXACIN
     Indication: Prophylaxis
     Dosage: 250MG TWICE DAILY; TABLET
     Route: 065
     Dates: start: 20210303, end: 20211220

REACTIONS (6)
  - Medication error [Unknown]
  - Tendon pain [Recovered/Resolved with Sequelae]
  - Pruritus [Not Recovered/Not Resolved]
  - Tinnitus [Not Recovered/Not Resolved]
  - Asthenia [Recovered/Resolved with Sequelae]
  - Ageusia [Recovering/Resolving]

NARRATIVE: CASE EVENT DATE: 20210304
